FAERS Safety Report 21145773 (Version 4)
Quarter: 2022Q4

REPORT INFORMATION
  Report Type: Report from Study
  Country: FR (occurrence: FR)
  Receive Date: 20220729
  Receipt Date: 20221031
  Transmission Date: 20230113
  Serious: Yes (Other)
  Sender: FDA-Public Use
  Company Number: FR-JNJFOC-20170507782

PATIENT
  Age: 88 Year
  Sex: Female
  Weight: 47 kg

DRUGS (1)
  1. IBRUTINIB [Suspect]
     Active Substance: IBRUTINIB
     Indication: Chronic lymphocytic leukaemia
     Route: 048
     Dates: start: 20160519

REACTIONS (3)
  - Bowen^s disease [Recovered/Resolved]
  - Septic shock [Unknown]
  - Humerus fracture [Recovered/Resolved with Sequelae]

NARRATIVE: CASE EVENT DATE: 20161101
